FAERS Safety Report 9131734 (Version 1)
Quarter: 2013Q1

REPORT INFORMATION
  Report Type: Report from Study
  Country: US (occurrence: US)
  Receive Date: 20130301
  Receipt Date: 20130301
  Transmission Date: 20140127
  Serious: Yes (Other)
  Sender: FDA-Public Use
  Company Number: US-ABBOTT-13P-163-1053376-00

PATIENT
  Sex: Female
  Weight: 74.91 kg

DRUGS (11)
  1. HUMIRA [Suspect]
     Indication: CROHN^S DISEASE
  2. HUMIRA [Suspect]
  3. HUMIRA [Suspect]
     Dosage: FOUR WEEKS AFTER 160MG DOSE
     Dates: start: 201302
  4. CITALOPRAM [Concomitant]
     Indication: DEPRESSION
  5. HYDROCHLOROTHIAZIDE [Concomitant]
     Indication: HYPERTENSION
  6. IMURAN [Concomitant]
     Indication: CROHN^S DISEASE
  7. PHENERGAN [Concomitant]
     Indication: NAUSEA
  8. PHENERGAN [Concomitant]
     Indication: CROHN^S DISEASE
  9. TRAZODONE [Concomitant]
     Indication: SLEEP DISORDER THERAPY
  10. MORPHINE [Concomitant]
     Indication: PAIN
  11. HYDROCODONE [Concomitant]
     Indication: PAIN

REACTIONS (1)
  - Breast mass [Not Recovered/Not Resolved]
